FAERS Safety Report 17362271 (Version 1)
Quarter: 2020Q1

REPORT INFORMATION
  Report Type: Spontaneous
  Country: IT (occurrence: IT)
  Receive Date: 20200203
  Receipt Date: 20200203
  Transmission Date: 20200409
  Serious: Yes (Other)
  Sender: FDA-Public Use
  Company Number: IT-AMGEN-ITASP2020015691

PATIENT
  Age: 63 Year
  Sex: Female
  Weight: 50 kg

DRUGS (10)
  1. TACHIPIRINA [Concomitant]
     Active Substance: ACETAMINOPHEN
     Route: 048
  2. PANTOPRAZOLO SUN [Concomitant]
     Route: 042
  3. CALCIUM SANDOZ + D [Concomitant]
     Indication: OSTEOPOROSIS
     Route: 048
     Dates: start: 20180314
  4. AVASTIN [ATORVASTATIN CALCIUM] [Suspect]
     Active Substance: ATORVASTATIN CALCIUM
     Indication: METAPLASTIC BREAST CARCINOMA
     Dosage: 100 MILLIGRAM, CYCLICAL
     Route: 041
  5. DIBASE [Concomitant]
     Active Substance: CHOLECALCIFEROL
     Indication: OSTEOPOROSIS
     Route: 048
     Dates: start: 20180314
  6. TRIMETON AR [Concomitant]
     Route: 042
  7. PACLITAXEL SANDOZ [Suspect]
     Active Substance: PACLITAXEL
     Indication: BREAST CANCER STAGE IV
     Dosage: 88.51 MILLIGRAM, CYCLICAL
     Route: 041
     Dates: start: 20190704
  8. PALONOSETRON FRESENIUS KABI [Concomitant]
  9. XGEVA [Suspect]
     Active Substance: DENOSUMAB
     Indication: NEOPLASM MALIGNANT
     Dosage: 120 MILLIGRAM, CYCLICAL
     Route: 065
     Dates: start: 20180615
  10. DECADRON [Concomitant]
     Active Substance: DEXAMETHASONE
     Route: 042

REACTIONS (4)
  - Purulence [Not Recovered/Not Resolved]
  - Erythema [Not Recovered/Not Resolved]
  - Swelling face [Not Recovered/Not Resolved]
  - Osteonecrosis of jaw [Not Recovered/Not Resolved]

NARRATIVE: CASE EVENT DATE: 20191128
